FAERS Safety Report 9300070 (Version 1)
Quarter: 2013Q1

REPORT INFORMATION
  Report Type: Spontaneous
  Country: US (occurrence: None)
  Receive Date: 20121231
  Receipt Date: 20121231
  Transmission Date: 20140127
  Serious: Yes (Hospitalization)
  Sender: FDA-Public Use
  Company Number: RB-47146-2012

PATIENT
  Age: 42 Year
  Sex: Female

DRUGS (2)
  1. SUBOXONE [Suspect]
     Indication: DRUG DEPENDENCE
     Route: 060
  2. VISTARIL [Concomitant]

REACTIONS (6)
  - Drug withdrawal syndrome [None]
  - Drug dependence [None]
  - Decreased appetite [None]
  - Dehydration [None]
  - Urinary tract infection [None]
  - Drug abuse [None]
